FAERS Safety Report 7142085-8 (Version None)
Quarter: 2010Q4

REPORT INFORMATION
  Report Type: 
  Country: None (occurrence: None)
  Receive Date: 20101207
  Receipt Date: 20101201
  Transmission Date: 20110411
  Serious: Yes (Death, Other)
  Sender: FDA-Public Use
  Company Number: US-PFIZER INC-HQWYE353521JUL05

PATIENT
  Sex: Female
  Weight: 69 kg

DRUGS (8)
  1. PREMPRO [Suspect]
     Indication: HORMONE REPLACEMENT THERAPY
     Dosage: ONCE DAILY
     Route: 048
     Dates: start: 19960101, end: 20020101
  2. PREMPRO [Suspect]
     Indication: MENOPAUSAL SYMPTOMS
  3. PREMARIN [Suspect]
     Indication: HORMONE REPLACEMENT THERAPY
     Dosage: ONCE DAILY
     Route: 048
     Dates: start: 19910101, end: 19950101
  4. PREMARIN [Suspect]
     Indication: MENOPAUSAL SYMPTOMS
  5. PROVERA [Suspect]
     Indication: HORMONE REPLACEMENT THERAPY
     Dosage: ONCE DAILY
     Route: 048
     Dates: start: 19910101, end: 19950101
  6. PROVERA [Suspect]
     Indication: MENOPAUSAL SYMPTOMS
  7. CLONIDINE [Concomitant]
     Indication: BLOOD PRESSURE
     Dosage: 0.1 MG, UNK
     Dates: start: 19800101, end: 20070601
  8. DIOVAN HCT [Concomitant]
     Indication: BLOOD PRESSURE
     Dosage: 160-25 MG
     Dates: start: 19800101

REACTIONS (1)
  - BREAST CANCER METASTATIC [None]
